FAERS Safety Report 21189311 (Version 1)
Quarter: 2022Q3

REPORT INFORMATION
  Report Type: Spontaneous
  Country: JP (occurrence: JP)
  Receive Date: 20220809
  Receipt Date: 20220809
  Transmission Date: 20221026
  Serious: Yes (Hospitalization, Other)
  Sender: FDA-Public Use
  Company Number: JP-SUN PHARMACEUTICAL INDUSTRIES LTD-2022RR-347932

PATIENT
  Age: 39 Year
  Sex: Female

DRUGS (2)
  1. NIFEDIPINE [Suspect]
     Active Substance: NIFEDIPINE
     Indication: Hypertension
     Dosage: 20 MILLIGRAM, DAILY
     Route: 065
  2. NIFEDIPINE [Suspect]
     Active Substance: NIFEDIPINE
     Dosage: 80 MILLIGRAM, DAILY
     Route: 065

REACTIONS (4)
  - Superimposed pre-eclampsia [Recovering/Resolving]
  - Drug ineffective [Recovering/Resolving]
  - Exposure during pregnancy [Unknown]
  - Proteinuria [Recovering/Resolving]
